FAERS Safety Report 12809141 (Version 1)
Quarter: 2016Q4

REPORT INFORMATION
  Report Type: Spontaneous
  Country: SE (occurrence: SE)
  Receive Date: 20161004
  Receipt Date: 20161004
  Transmission Date: 20170207
  Serious: Yes (Other)
  Sender: FDA-Public Use
  Company Number: SE-ALLERGAN-1670893US

PATIENT
  Sex: Male

DRUGS (1)
  1. ESCITALOPRAM OXALATE UNK [Suspect]
     Active Substance: ESCITALOPRAM OXALATE
     Indication: DEPRESSION
     Dosage: UNKNOWN
     Route: 065

REACTIONS (11)
  - Suicidal behaviour [Unknown]
  - Intentional self-injury [Unknown]
  - Appetite disorder [Unknown]
  - Fatigue [Unknown]
  - Cognitive disorder [Unknown]
  - Feelings of worthlessness [Unknown]
  - Decreased interest [Unknown]
  - Depressed mood [Unknown]
  - Weight fluctuation [Unknown]
  - Irritability [Unknown]
  - Disturbance in attention [Unknown]
